FAERS Safety Report 6094719-7 (Version None)
Quarter: 2009Q1

REPORT INFORMATION
  Report Type: 
  Country: None (occurrence: None)
  Receive Date: 20090224
  Receipt Date: 20090218
  Transmission Date: 20090719
  Serious: Yes (Hospitalization)
  Sender: FDA-Public Use
  Company Number: 2009SP003753

PATIENT
  Age: 73 Year
  Sex: Female
  Weight: 66 kg

DRUGS (13)
  1. TEMODAL [Suspect]
     Indication: CENTRAL NERVOUS SYSTEM LYMPHOMA
     Dosage: 250 MG;QD; PO
     Route: 048
     Dates: start: 20090131
  2. METHOTREXATE [Suspect]
     Indication: CENTRAL NERVOUS SYSTEM LYMPHOMA
     Dosage: 5800 MG;ONCE; IV
     Route: 042
     Dates: start: 20090131, end: 20090131
  3. CORTANCYL [Concomitant]
  4. NEXIUM [Concomitant]
  5. AMLOR [Concomitant]
  6. MAGNESIUM SULFATE [Concomitant]
  7. CRESTOR [Concomitant]
  8. LOVENOX [Concomitant]
  9. LANTUS [Concomitant]
  10. DIFFU-K [Concomitant]
  11. OLOPATADINE [Concomitant]
  12. METHYLPREDNISOLONE [Concomitant]
  13. FOLINATE CALCIUM [Concomitant]

REACTIONS (4)
  - CYTOLYTIC HEPATITIS [None]
  - HAEMATOTOXICITY [None]
  - HEPATOTOXICITY [None]
  - WEIGHT INCREASED [None]
